FAERS Safety Report 8851427 (Version 1)
Quarter: 2012Q4

REPORT INFORMATION
  Report Type: 
  Country: US (occurrence: US)
  Receive Date: 20121021
  Receipt Date: 20121021
  Transmission Date: 20130627
  Serious: No
  Sender: FDA-Public Use
  Company Number: US-009507513-1210USA008820

PATIENT

DRUGS (3)
  1. VICTRELIS [Suspect]
     Dosage: UNK
  2. PEGINTERFERON ALFA-2B [Suspect]
     Dosage: UNK
  3. RIBAVIRIN [Suspect]
     Dosage: UNK

REACTIONS (2)
  - Cough [Unknown]
  - Eructation [Unknown]
